FAERS Safety Report 14829730 (Version 4)
Quarter: 2018Q4

REPORT INFORMATION
  Report Type: Spontaneous
  Country: JP (occurrence: JP)
  Receive Date: 20180430
  Receipt Date: 20181023
  Transmission Date: 20190204
  Serious: Yes (Death, Other)
  Sender: FDA-Public Use
  Company Number: JP-PFIZER INC-2018174511

PATIENT
  Age: 50 Year
  Sex: Female
  Weight: 65 kg

DRUGS (11)
  1. IBRANCE [Suspect]
     Active Substance: PALBOCICLIB
     Indication: BREAST CANCER RECURRENT
     Dosage: 125 MG, 1X/DAY
     Route: 048
     Dates: start: 20180118, end: 20180207
  2. MUCOSTA [Concomitant]
     Active Substance: REBAMIPIDE
     Dosage: UNK
  3. TAKECAB [Concomitant]
     Active Substance: VONOPRAZAN FUMURATE
     Dosage: UNK
  4. CONTOMIN /00011902/ [Concomitant]
     Active Substance: CHLORPROMAZINE HYDROCHLORIDE
     Dosage: UNK
  5. HALCION [Concomitant]
     Active Substance: TRIAZOLAM
     Dosage: UNK
  6. E KEPPRA [Concomitant]
     Active Substance: LEVETIRACETAM
     Dosage: 500 MG, 2X/DAY
  7. RINDERON /00008501/ [Concomitant]
     Active Substance: BETAMETHASONE
     Dosage: 1 MG, 2X/DAY
  8. LOXONIN [Concomitant]
     Active Substance: LOXOPROFEN SODIUM
     Dosage: UNK
  9. LAC-B [Concomitant]
     Active Substance: BIFIDOBACTERIUM SPP.
     Dosage: UNK
  10. SILECE [Concomitant]
     Active Substance: FLUNITRAZEPAM
     Dosage: UNK
  11. FEMARA [Suspect]
     Active Substance: LETROZOLE
     Indication: BREAST CANCER RECURRENT
     Dosage: 2.5 MG, 1X/DAY
     Dates: start: 20180118, end: 20180209

REACTIONS (5)
  - Headache [Unknown]
  - Death [Fatal]
  - Platelet count decreased [Unknown]
  - Cerebral haemorrhage [Fatal]
  - Dysarthria [Unknown]

NARRATIVE: CASE EVENT DATE: 20180209
